FAERS Safety Report 5808899-9 (Version None)
Quarter: 2008Q3

REPORT INFORMATION
  Report Type: 
  Country: None (occurrence: None)
  Receive Date: 20080714
  Receipt Date: 20080707
  Transmission Date: 20090109
  Serious: Yes (Hospitalization)
  Sender: FDA-Public Use
  Company Number: CG-MERCK-0807USA01056

PATIENT
  Age: 53 Year
  Sex: Male
  Weight: 64 kg

DRUGS (1)
  1. STROMECTOL [Suspect]
     Indication: ONCHOCERCIASIS
     Route: 048
     Dates: start: 20071130, end: 20071130

REACTIONS (5)
  - ABNORMAL BEHAVIOUR [None]
  - BACK PAIN [None]
  - GAIT DISTURBANCE [None]
  - GENERALISED OEDEMA [None]
  - PYREXIA [None]
